FAERS Safety Report 13017278 (Version 1)
Quarter: 2016Q4

REPORT INFORMATION
  Report Type: Spontaneous
  Country: US (occurrence: US)
  Receive Date: 20161212
  Receipt Date: 20161212
  Transmission Date: 20170207
  Serious: Yes (Life-Threatening, Hospitalization, Other)
  Sender: FDA-Public Use
  Company Number: US-GUERBET LLC-1060673

PATIENT
  Age: 32 Year
  Sex: Female
  Weight: 113 kg

DRUGS (2)
  1. OPTIMARK [Suspect]
     Active Substance: GADOVERSETAMIDE
     Indication: NUCLEAR MAGNETIC RESONANCE IMAGING SPINAL
     Route: 042
     Dates: start: 20161130, end: 20161130
  2. SODIUM CHLORIDE. [Concomitant]
     Active Substance: SODIUM CHLORIDE

REACTIONS (3)
  - Throat irritation [Recovered/Resolved]
  - Cardio-respiratory arrest [Recovered/Resolved]
  - Dyspnoea [Recovered/Resolved]

NARRATIVE: CASE EVENT DATE: 20161130
